FAERS Safety Report 18156367 (Version 1)
Quarter: 2020Q3

REPORT INFORMATION
  Report Type: Spontaneous
  Country: US (occurrence: US)
  Receive Date: 20200816
  Receipt Date: 20200816
  Transmission Date: 20201103
  Serious: Yes (Hospitalization)
  Sender: FDA-Public Use
  Company Number: None

PATIENT
  Sex: Male
  Weight: 108.2 kg

DRUGS (1)
  1. ONCASPAR [Suspect]
     Active Substance: PEGASPARGASE

REACTIONS (8)
  - Fall [None]
  - Balance disorder [None]
  - Dysstasia [None]
  - Gait disturbance [None]
  - Photopsia [None]
  - Muscular weakness [None]
  - Limb discomfort [None]
  - Dizziness [None]

NARRATIVE: CASE EVENT DATE: 20200805
